FAERS Safety Report 8763808 (Version 1)
Quarter: 2012Q4

REPORT INFORMATION
  Report Type: Spontaneous
  Country: US (occurrence: None)
  Receive Date: 20120831
  Receipt Date: 20120831
  Transmission Date: 20130627
  Serious: Yes (Other)
  Sender: FDA-Public Use
  Company Number: None

PATIENT
  Age: 27 Year
  Sex: Female
  Weight: 65 kg

DRUGS (4)
  1. KALETRA [Suspect]
     Dosage: 2 TABLETS
     Route: 048
     Dates: start: 20110203, end: 20120830
  2. PREVIFEM [Suspect]
     Dosage: 1 TABLET
     Route: 048
     Dates: start: 20120607, end: 20120816
  3. MEDROXYPROGESTERONE [Concomitant]
  4. TRUVADA [Concomitant]

REACTIONS (3)
  - Unintended pregnancy [None]
  - Exposure during pregnancy [None]
  - Pregnancy on oral contraceptive [None]
